FAERS Safety Report 4320037-0 (Version None)
Quarter: 2004Q1

REPORT INFORMATION
  Report Type: 
  Country: None (occurrence: None)
  Receive Date: 20040316
  Receipt Date: 20040302
  Transmission Date: 20041129
  Serious: Yes (Hospitalization)
  Sender: FDA-Public Use
  Company Number: US-SHR-03-016606

PATIENT
  Age: 67 Year
  Sex: Male
  Weight: 80.7 kg

DRUGS (19)
  1. BETASERON [Suspect]
     Indication: MULTIPLE SCLEROSIS
     Dosage: 8 MIU, EVERY 2D, SUBCUTANEOUS
     Route: 058
     Dates: start: 20020401
  2. TAXOL [Suspect]
     Indication: OESOPHAGEAL ADENOCARCINOMA
     Dosage: WEEKLY,
     Dates: start: 20030801, end: 20031001
  3. CARBOPLATIN [Suspect]
     Indication: OESOPHAGEAL ADENOCARCINOMA
     Dosage: EVERY 3 WEEKS,
     Dates: start: 20030801, end: 20031001
  4. RADIATION THERAPY () [Suspect]
     Indication: OESOPHAGEAL ADENOCARCINOMA
     Dates: start: 20030828, end: 20031001
  5. WELLBUTRIN [Concomitant]
  6. LISINOPRIL [Concomitant]
  7. OXYBUTYNIN HYDROCHLORIDE (OXYBUTYNIN HYDROCHLORIDE) [Concomitant]
  8. GLYBURIDE [Concomitant]
  9. DOXAZOSIN MESYLATE [Concomitant]
  10. COMPAZINE [Concomitant]
  11. LORAZEPAM [Concomitant]
  12. ACETYLSALICYLIC ACID SRT [Concomitant]
  13. DIPHENHYDRAMINE HCL [Concomitant]
  14. AEROBID (INHALER) (FLUNISOLIDE) [Concomitant]
  15. SEREVENT [Concomitant]
  16. GLYCERYL TRINITRATE (NITROGLYCERINE) [Concomitant]
  17. COMBIVENT (IPRATROPIUM BROMIDE) [Concomitant]
  18. RABEPRAZOLE SODIUM [Concomitant]
  19. METOFURONE [Concomitant]

REACTIONS (12)
  - ANAEMIA [None]
  - ANOREXIA [None]
  - ASTHENIA [None]
  - BUNDLE BRANCH BLOCK RIGHT [None]
  - DEHYDRATION [None]
  - DIARRHOEA [None]
  - LUNG INFECTION [None]
  - LUNG INFILTRATION [None]
  - MALNUTRITION [None]
  - NAUSEA [None]
  - PYREXIA [None]
  - TACHYCARDIA [None]
